FAERS Safety Report 5915987-5 (Version None)
Quarter: 2008Q4

REPORT INFORMATION
  Report Type: 
  Country: None (occurrence: None)
  Receive Date: 20081009
  Receipt Date: 20081009
  Transmission Date: 20090506
  Serious: Yes (Hospitalization)
  Sender: FDA-Public Use
  Company Number: None

PATIENT
  Age: 41 Year
  Sex: Female
  Weight: 97.977 kg

DRUGS (4)
  1. AVASTIN [Suspect]
     Indication: BREAST CANCER
     Dosage: 15MG/KG=140MG
     Dates: start: 20080814
  2. AVASTIN [Suspect]
     Indication: BREAST CANCER
     Dosage: 15MG/KG=140MG
     Dates: start: 20080904
  3. GEMZAR [Suspect]
     Indication: BREAST CANCER
     Dosage: 2000MG/M2=4000MG
     Dates: start: 20080814
  4. GEMZAR [Suspect]
     Indication: BREAST CANCER
     Dosage: 2000MG/M2=4000MG
     Dates: start: 20080904

REACTIONS (11)
  - ARTHRALGIA [None]
  - BLOOD PRESSURE INCREASED [None]
  - CARDIAC FAILURE CONGESTIVE [None]
  - DRUG TOXICITY [None]
  - DYSPNOEA AT REST [None]
  - EJECTION FRACTION DECREASED [None]
  - HEART RATE INCREASED [None]
  - INFECTION [None]
  - INTERSTITIAL LUNG DISEASE [None]
  - LEFT VENTRICULAR DYSFUNCTION [None]
  - NEUROPATHY PERIPHERAL [None]
